FAERS Safety Report 5429256-3 (Version None)
Quarter: 2007Q3

REPORT INFORMATION
  Report Type: 
  Country: None (occurrence: None)
  Receive Date: 20070829
  Receipt Date: 20070823
  Transmission Date: 20080115
  Serious: Yes (Death, Other)
  Sender: FDA-Public Use
  Company Number: GB-AVENTIS-200717738GDDC

PATIENT
  Age: 36 Year
  Sex: Male

DRUGS (3)
  1. TAXOTERE [Suspect]
     Indication: NON-SMALL CELL LUNG CANCER STAGE IV
  2. GEMCITABINE HCL [Concomitant]
  3. CISPLATIN [Concomitant]

REACTIONS (5)
  - DEATH [None]
  - DYSPNOEA [None]
  - NEUTROPENIA [None]
  - PULMONARY OEDEMA [None]
  - SCIATICA [None]
